FAERS Safety Report 8131182-6 (Version None)
Quarter: 2012Q1

REPORT INFORMATION
  Report Type: 
  Country: None (occurrence: None)
  Receive Date: 20120213
  Receipt Date: 20120201
  Transmission Date: 20120608
  Serious: Yes (Hospitalization, Other)
  Sender: FDA-Public Use
  Company Number: US-JNJFOC-20120201094

PATIENT
  Sex: Female
  Weight: 73.48 kg

DRUGS (20)
  1. TRAZODONE HCL [Concomitant]
     Indication: DEPRESSION
     Route: 065
     Dates: start: 20020101
  2. LACTAID [Concomitant]
     Indication: LACTOSE INTOLERANCE
     Route: 065
  3. LORAZEPAM [Concomitant]
     Indication: ANXIETY
     Route: 065
     Dates: start: 20020101
  4. ASPIRIN [Concomitant]
     Indication: THROMBOSIS
     Route: 048
  5. TOCOPHEROL CONCENTRATE CAP [Concomitant]
     Indication: UTERINE LEIOMYOMA
     Route: 065
  6. ASCORBIC ACID [Concomitant]
     Indication: ROUTINE HEALTH MAINTENANCE
     Route: 048
  7. SULINDAC [Concomitant]
     Indication: ARTHRITIS
     Route: 065
  8. BYSTOLIC [Concomitant]
     Indication: BLOOD PRESSURE
     Route: 065
  9. LOVASTATIN [Concomitant]
     Indication: BLOOD CHOLESTEROL
     Route: 065
     Dates: start: 20020101
  10. TRAZODONE HCL [Concomitant]
     Indication: SLEEP DISORDER
     Route: 065
     Dates: start: 20020101
  11. CALCIUM AND VITAMIN D [Concomitant]
     Indication: BONE DISORDER
     Route: 065
  12. MULTI-VITAMINS [Concomitant]
     Indication: ROUTINE HEALTH MAINTENANCE
     Route: 065
  13. BONIVA [Concomitant]
     Indication: OSTEOPOROSIS
     Route: 065
  14. NORPACE [Concomitant]
     Indication: VENTRICULAR TACHYCARDIA
     Route: 065
     Dates: start: 20050101
  15. MIRALAX [Concomitant]
     Indication: CONSTIPATION
     Route: 065
     Dates: start: 20110101
  16. METHOTREXATE [Concomitant]
     Indication: RHEUMATOID ARTHRITIS
     Route: 048
  17. FOLIC ACID [Concomitant]
     Indication: ROUTINE HEALTH MAINTENANCE
     Route: 065
  18. REMICADE [Suspect]
     Indication: RHEUMATOID ARTHRITIS
     Route: 042
     Dates: start: 20070101
  19. OMEPRAZOLE [Concomitant]
     Indication: GASTRIC DISORDER
     Route: 048
  20. REFRESH TEARS [Concomitant]
     Route: 031

REACTIONS (7)
  - VISUAL IMPAIRMENT [None]
  - ARTHRALGIA [None]
  - SURGERY [None]
  - BRONCHIECTASIS [None]
  - ARTHROPATHY [None]
  - CHONDROPATHY [None]
  - EYELID PTOSIS [None]
